FAERS Safety Report 5603771-1 (Version None)
Quarter: 2008Q1

REPORT INFORMATION
  Report Type: 
  Country: None (occurrence: None)
  Receive Date: 20080122
  Receipt Date: 20080115
  Transmission Date: 20080703
  Serious: Yes (Hospitalization)
  Sender: FDA-Public Use
  Company Number: 2008010012

PATIENT
  Sex: Male

DRUGS (1)
  1. ASTELIN [Suspect]
     Indication: ILL-DEFINED DISORDER
     Dates: start: 20070101, end: 20070101

REACTIONS (5)
  - FALL [None]
  - HIP FRACTURE [None]
  - INCORRECT DOSE ADMINISTERED [None]
  - NASAL DRYNESS [None]
  - SPEECH DISORDER [None]
